FAERS Safety Report 9345164 (Version 3)
Quarter: 2013Q4

REPORT INFORMATION
  Report Type: Spontaneous
  Country: US (occurrence: US)
  Receive Date: 20130612
  Receipt Date: 20131008
  Transmission Date: 20140711
  Serious: Yes (Hospitalization)
  Sender: FDA-Public Use
  Company Number: US-GLAXOSMITHKLINE-A1025854A

PATIENT
  Age: 34 Year
  Sex: Female
  Weight: 57.3 kg

DRUGS (2)
  1. LAMICTAL XR [Suspect]
     Indication: EPILEPSY
     Dosage: 600MG PER DAY
     Route: 048
     Dates: start: 2010
  2. KEPPRA XR [Suspect]
     Dosage: 500MG THREE TIMES PER DAY
     Route: 065

REACTIONS (7)
  - Paralysis [Recovered/Resolved]
  - Anticonvulsant drug level increased [Recovered/Resolved]
  - Toxicity to various agents [Recovered/Resolved]
  - Pain in extremity [Recovered/Resolved]
  - Dizziness [Recovered/Resolved]
  - Exposure during pregnancy [Unknown]
  - Live birth [Unknown]
